FAERS Safety Report 22259200 (Version 4)
Quarter: 2024Q1

REPORT INFORMATION
  Report Type: Spontaneous
  Country: US (occurrence: US)
  Receive Date: 20230427
  Receipt Date: 20240109
  Transmission Date: 20240410
  Serious: Yes (Other)
  Sender: FDA-Public Use
  Company Number: US-PFIZER INC-202300168518

PATIENT
  Age: 80 Year
  Sex: Male
  Weight: 106.59 kg

DRUGS (1)
  1. DOPAMINE HYDROCHLORIDE [Suspect]
     Active Substance: DOPAMINE HYDROCHLORIDE
     Indication: Cardiac failure congestive
     Dosage: UNK, DAILY (7 DAYS A WEEK)
     Route: 042
     Dates: end: 202207

REACTIONS (4)
  - Drug dependence [Unknown]
  - Nausea [Unknown]
  - Product dose omission issue [Unknown]
  - Product supply issue [Unknown]

NARRATIVE: CASE EVENT DATE: 20220701
